FAERS Safety Report 16205008 (Version 1)
Quarter: 2019Q2

REPORT INFORMATION
  Report Type: Spontaneous
  Country: US (occurrence: US)
  Receive Date: 20190416
  Receipt Date: 20190416
  Transmission Date: 20190711
  Serious: No
  Sender: FDA-Public Use
  Company Number: US-CHILTERN-US-2019-000426

PATIENT
  Sex: Female

DRUGS (4)
  1. RHOPRESSA [Suspect]
     Active Substance: NETARSUDIL MESYLATE
  2. SIMBRINZA [Concomitant]
     Active Substance: BRIMONIDINE TARTRATE\BRINZOLAMIDE
     Dosage: UNK, BID
     Route: 047
  3. TIMOLOL. [Concomitant]
     Active Substance: TIMOLOL
     Dosage: UNK, BID
     Route: 047
  4. LATANOPROST. [Concomitant]
     Active Substance: LATANOPROST
     Dosage: UNK
     Route: 047

REACTIONS (4)
  - Conjunctival hyperaemia [Not Recovered/Not Resolved]
  - Vision blurred [Not Recovered/Not Resolved]
  - Lacrimation increased [Not Recovered/Not Resolved]
  - Insomnia [Not Recovered/Not Resolved]
